FAERS Safety Report 5326371-X (Version None)
Quarter: 2007Q2

REPORT INFORMATION
  Report Type: 
  Country: None (occurrence: None)
  Receive Date: 20070516
  Receipt Date: 20070510
  Transmission Date: 20071010
  Serious: Yes (Hospitalization)
  Sender: FDA-Public Use
  Company Number: B0470724A

PATIENT
  Age: 14 Month
  Sex: Female
  Weight: 11.4 kg

DRUGS (2)
  1. AUGMENTIN '125' [Suspect]
     Indication: OTITIS MEDIA ACUTE
     Route: 048
     Dates: start: 20070323, end: 20070330
  2. RIFAMYCINE CHIBRET [Concomitant]
     Indication: CONJUNCTIVITIS
     Route: 047

REACTIONS (6)
  - FACE OEDEMA [None]
  - PYREXIA [None]
  - RASH MACULAR [None]
  - RASH PAPULAR [None]
  - SKIN DISCOLOURATION [None]
  - URTICARIA [None]
